FAERS Safety Report 10337104 (Version 1)
Quarter: 2014Q3

REPORT INFORMATION
  Report Type: Report from Study
  Country: NL (occurrence: NL)
  Receive Date: 20140723
  Receipt Date: 20140723
  Transmission Date: 20150326
  Serious: Yes (Hospitalization, Disabling, Other)
  Sender: FDA-Public Use
  Company Number: NL-ASTRAZENECA-2014SE50339

PATIENT
  Age: 58 Year
  Sex: Male

DRUGS (6)
  1. FONDAPARINUX [Concomitant]
     Active Substance: FONDAPARINUX
     Dosage: DAILY
     Route: 058
  2. TICAGRELOR [Suspect]
     Active Substance: TICAGRELOR
     Indication: ACUTE CORONARY SYNDROME
     Route: 048
     Dates: start: 20131003
  3. SIMVASTATIN. [Concomitant]
     Active Substance: SIMVASTATIN
  4. ASA (NON-AZ PRODUCT) [Suspect]
     Active Substance: ASPIRIN
     Indication: ACUTE CORONARY SYNDROME
     Route: 048
  5. NITROGLYCERIN. [Concomitant]
     Active Substance: NITROGLYCERIN
     Route: 042
  6. METOPROLOL [Concomitant]
     Active Substance: METOPROLOL

REACTIONS (2)
  - Acute myocardial infarction [Not Recovered/Not Resolved]
  - Coronary artery stenosis [Not Recovered/Not Resolved]

NARRATIVE: CASE EVENT DATE: 20140208
